FAERS Safety Report 5191895-5 (Version None)
Quarter: 2006Q4

REPORT INFORMATION
  Report Type: 
  Country: None (occurrence: None)
  Receive Date: 20061227
  Receipt Date: 20060802
  Transmission Date: 20070319
  Serious: Yes (Other)
  Sender: FDA-Public Use
  Company Number: PHNU2006DE02692

PATIENT
  Age: 45 Year
  Sex: Female
  Weight: 71 kg

DRUGS (3)
  1. TRILEPTAL [Suspect]
     Indication: EPILEPSY
     Dosage: 4200 MG/DAY
     Route: 048
     Dates: start: 19980901, end: 19990801
  2. TRILEPTAL [Suspect]
     Dosage: 1800 MG/DAY
     Route: 048
     Dates: start: 19990801, end: 20040801
  3. TRILEPTAL [Suspect]
     Dosage: 600 MG/DAY
     Route: 048
     Dates: start: 20040901, end: 20061001

REACTIONS (6)
  - ARTHRALGIA [None]
  - ARTHROPATHY [None]
  - DIPLOPIA [None]
  - MENORRHAGIA [None]
  - MENSTRUATION IRREGULAR [None]
  - METRORRHAGIA [None]
